FAERS Safety Report 7362092-X (Version None)
Quarter: 2011Q1

REPORT INFORMATION
  Report Type: 
  Country: None (occurrence: None)
  Receive Date: 20110318
  Receipt Date: 20110310
  Transmission Date: 20110831
  Serious: Yes (Other)
  Sender: FDA-Public Use
  Company Number: JP-PFIZER INC-2011031733

PATIENT
  Age: 64 Year
  Sex: Female

DRUGS (9)
  1. LYRICA [Suspect]
     Indication: BACK PAIN
     Dosage: 200 MG, DAILY
     Route: 048
     Dates: start: 20110207, end: 20110209
  2. METHYCOBAL [Concomitant]
     Dosage: UNK
     Route: 048
  3. AMARYL [Concomitant]
     Dosage: UNK
     Route: 048
  4. EPADEL [Concomitant]
     Dosage: 600 MG/DAY
     Route: 048
  5. VOLTAREN [Concomitant]
     Dosage: UNK
     Route: 054
  6. GASTER [Concomitant]
     Dosage: 10 MG, UNK
     Route: 048
  7. CELECOX [Suspect]
     Indication: BACK PAIN
     Dosage: 200 MG, DAILY
     Route: 048
     Dates: start: 20110207, end: 20110209
  8. PRORENAL [Concomitant]
     Dosage: UNK
     Route: 048
  9. EVISTA [Concomitant]
     Dosage: UNK
     Route: 048

REACTIONS (1)
  - DRUG ERUPTION [None]
